FAERS Safety Report 13229869 (Version 8)
Quarter: 2019Q3

REPORT INFORMATION
  Report Type: Report from Study
  Country: GB (occurrence: GB)
  Receive Date: 20170214
  Receipt Date: 20190912
  Transmission Date: 20191004
  Serious: Yes (Hospitalization, Other)
  Sender: FDA-Public Use
  Company Number: GB-BRISTOL-MYERS SQUIBB COMPANY-BMS-2016-056271

PATIENT
  Sex: Male

DRUGS (2)
  1. ABATACEPT [Suspect]
     Active Substance: ABATACEPT
     Indication: RHEUMATOID ARTHRITIS
     Dosage: 125 MG, QWK
     Route: 058
     Dates: start: 20160622
  2. OMEPRAZOLE. [Concomitant]
     Active Substance: OMEPRAZOLE
     Indication: PRODUCT USED FOR UNKNOWN INDICATION
     Dosage: 20 MILLIGRAM
     Route: 065

REACTIONS (14)
  - Dyspnoea [Unknown]
  - Animal bite [Unknown]
  - Condition aggravated [Unknown]
  - Impaired healing [Unknown]
  - Lower respiratory tract infection [Unknown]
  - Tooth abscess [Unknown]
  - Drug ineffective [Unknown]
  - Infection [Unknown]
  - Product quality issue [Unknown]
  - Rheumatoid arthritis [Unknown]
  - Gastroenteritis [Unknown]
  - Chronic obstructive pulmonary disease [Unknown]
  - Wound [Unknown]
  - Influenza [Unknown]
